FAERS Safety Report 9807620 (Version 1)
Quarter: 2014Q1

REPORT INFORMATION
  Report Type: Spontaneous
  Country: US (occurrence: US)
  Receive Date: 20140110
  Receipt Date: 20140110
  Transmission Date: 20141002
  Serious: No
  Sender: FDA-Public Use
  Company Number: US-SANOFI-AVENTIS-2013SA069986

PATIENT
  Age: 63 Year
  Sex: Female

DRUGS (5)
  1. PLAVIX [Suspect]
     Indication: TRANSIENT ISCHAEMIC ATTACK
     Route: 048
     Dates: start: 20111126, end: 20130701
  2. PRAVASTATIN [Suspect]
  3. LISINOPRIL [Concomitant]
  4. ZYRTEC [Concomitant]
  5. VITAMINS [Concomitant]

REACTIONS (6)
  - Tryptase increased [Unknown]
  - Abasia [Unknown]
  - Balance disorder [Unknown]
  - Crying [Unknown]
  - Red blood cell sedimentation rate increased [Unknown]
  - Hepatic enzyme increased [Unknown]
